FAERS Safety Report 25136588 (Version 1)
Quarter: 2025Q1

REPORT INFORMATION
  Report Type: Spontaneous
  Country: CA (occurrence: CA)
  Receive Date: 20250328
  Receipt Date: 20250328
  Transmission Date: 20250408
  Serious: Yes (Other)
  Sender: SANDOZ
  Company Number: CA-002147023-NVSC2025CA050009

PATIENT
  Age: 35 Year
  Sex: Male

DRUGS (1)
  1. ZOLEDRONIC ACID [Suspect]
     Active Substance: ZOLEDRONIC ACID
     Indication: Osteoporosis
     Route: 042

REACTIONS (7)
  - Fall [Recovered/Resolved]
  - Fibula fracture [Recovered/Resolved]
  - Forearm fracture [Recovered/Resolved]
  - Joint dislocation [Recovered/Resolved]
  - Patella fracture [Recovered/Resolved]
  - Pelvic fracture [Recovered/Resolved]
  - Tibia fracture [Recovered/Resolved]
